FAERS Safety Report 10668888 (Version 1)
Quarter: 2014Q4

REPORT INFORMATION
  Report Type: Spontaneous
  Country: US (occurrence: US)
  Receive Date: 20141222
  Receipt Date: 20141222
  Transmission Date: 20150529
  Serious: Yes (Hospitalization, Other)
  Sender: FDA-Public Use
  Company Number: US-SA-2014SA172663

PATIENT
  Age: 83 Year
  Sex: Female

DRUGS (2)
  1. SOLOSTAR [Concomitant]
     Active Substance: DEVICE
     Dates: start: 201310
  2. LANTUS SOLOSTAR [Suspect]
     Active Substance: INSULIN GLARGINE
     Indication: TYPE 2 DIABETES MELLITUS
     Dosage: DOSE:14 UNIT(S)
     Route: 065
     Dates: start: 201310

REACTIONS (6)
  - Condition aggravated [Unknown]
  - Visual impairment [Not Recovered/Not Resolved]
  - Eyelid disorder [Unknown]
  - Gait disturbance [Not Recovered/Not Resolved]
  - Cardiac pacemaker insertion [Unknown]
  - Cataract operation [Unknown]
